FAERS Safety Report 7329617-1 (Version None)
Quarter: 2011Q1

REPORT INFORMATION
  Report Type: 
  Country: None (occurrence: None)
  Receive Date: 20110303
  Receipt Date: 20110223
  Transmission Date: 20110831
  Serious: Yes (Other)
  Sender: FDA-Public Use
  Company Number: CH-ABBOTT-11P-151-0707828-00

PATIENT
  Age: 38 Year
  Sex: Male

DRUGS (5)
  1. DAIVOBET [Concomitant]
     Indication: PSORIATIC ARTHROPATHY
  2. HUMIRA [Suspect]
     Indication: PSORIATIC ARTHROPATHY
     Dates: start: 20070314
  3. METHOTREXATE [Suspect]
     Indication: PSORIATIC ARTHROPATHY
     Dates: end: 20101101
  4. ARAVA [Concomitant]
     Indication: PSORIATIC ARTHROPATHY
     Dates: start: 20101123
  5. METHOTREXATE [Concomitant]
     Dates: end: 20101101

REACTIONS (2)
  - HEPATIC ENZYME ABNORMAL [None]
  - SKIN DISORDER [None]
